FAERS Safety Report 26084074 (Version 1)
Quarter: 2025Q4

REPORT INFORMATION
  Report Type: Spontaneous
  Country: EU (occurrence: EU)
  Receive Date: 20251124
  Receipt Date: 20251124
  Transmission Date: 20260118
  Serious: Yes (Hospitalization, Other)
  Sender: GILEAD
  Company Number: None

PATIENT
  Age: 65 Year
  Sex: Female

DRUGS (11)
  1. VIREAD [Suspect]
     Active Substance: TENOFOVIR DISOPROXIL FUMARATE
     Indication: HIV infection
     Dosage: UNK
     Route: 065
  2. RITONAVIR [Suspect]
     Active Substance: RITONAVIR
     Indication: HIV infection
     Dosage: UNK
     Route: 048
  3. RITONAVIR [Suspect]
     Active Substance: RITONAVIR
     Dosage: UNK
     Route: 048
  4. RITONAVIR [Suspect]
     Active Substance: RITONAVIR
     Dosage: UNK
     Route: 048
  5. DARUNAVIR [Concomitant]
     Active Substance: DARUNAVIR
     Indication: Hepatitis B
  6. DARUNAVIR [Concomitant]
     Active Substance: DARUNAVIR
     Indication: HIV infection
  7. DENOSUMAB [Concomitant]
     Active Substance: DENOSUMAB
     Indication: Osteoporosis
  8. EMTRICITABINE [Concomitant]
     Active Substance: EMTRICITABINE
     Dosage: UNK
  9. ETRAVIRINE [Concomitant]
     Active Substance: ETRAVIRINE
     Indication: Hepatitis B
  10. ETRAVIRINE [Concomitant]
     Active Substance: ETRAVIRINE
     Indication: HIV infection
  11. ETRAVIRINE [Concomitant]
     Active Substance: ETRAVIRINE

REACTIONS (18)
  - Glomerular filtration rate abnormal [Recovered/Resolved]
  - Renal tubular dysfunction [Unknown]
  - Renal impairment [Recovering/Resolving]
  - Fanconi syndrome acquired [Recovered/Resolved]
  - Hypouricaemia [Recovered/Resolved]
  - Blood creatinine increased [Recovered/Resolved]
  - Glycosuria [Recovered/Resolved]
  - Hypovolaemia [Unknown]
  - Malnutrition [Unknown]
  - Osteomalacia [Unknown]
  - Hypophosphataemia [Recovered/Resolved]
  - Metabolic acidosis [Recovered/Resolved]
  - Urine phosphorus increased [Recovered/Resolved]
  - Urine uric acid increased [Recovered/Resolved]
  - Hypokalaemia [Recovered/Resolved]
  - Food refusal [Unknown]
  - Renal tubular acidosis [Recovered/Resolved]
  - Communication disorder [Unknown]
